FAERS Safety Report 6143194-2 (Version None)
Quarter: 2009Q2

REPORT INFORMATION
  Report Type: 
  Country: None (occurrence: None)
  Receive Date: 20090403
  Receipt Date: 20040727
  Transmission Date: 20091009
  Serious: Yes (Hospitalization)
  Sender: FDA-Public Use
  Company Number: IL-ROCHE-376341

PATIENT
  Sex: Male
  Weight: 88 kg

DRUGS (23)
  1. DACLIZUMAB [Suspect]
     Dosage: BASELINE VISIT
     Route: 065
     Dates: start: 20040421
  2. DACLIZUMAB [Suspect]
     Route: 065
     Dates: start: 20040506
  3. MYCOPHENOLATE MOFETIL [Suspect]
     Route: 048
     Dates: start: 20040422
  4. MYCOPHENOLATE MOFETIL [Suspect]
     Route: 048
     Dates: start: 20040513
  5. MYCOPHENOLATE MOFETIL [Suspect]
     Route: 048
     Dates: start: 20040518
  6. SIROLIMUS [Suspect]
     Route: 048
     Dates: start: 20040422, end: 20040424
  7. SIROLIMUS [Suspect]
     Route: 048
     Dates: start: 20040425, end: 20040513
  8. TACROLIMUS [Suspect]
     Route: 048
     Dates: start: 20040516
  9. TACROLIMUS [Suspect]
     Route: 048
     Dates: start: 20040531
  10. PREDNISONE [Suspect]
     Route: 048
     Dates: start: 20040422, end: 20040426
  11. PREDNISONE [Suspect]
     Route: 048
     Dates: start: 20040427, end: 20040504
  12. PREDNISONE [Suspect]
     Route: 048
     Dates: start: 20040506, end: 20041017
  13. PREDNISONE [Suspect]
     Route: 048
     Dates: start: 20041018
  14. METHYLPREDNISOLONE 4MG TAB [Suspect]
     Route: 048
     Dates: start: 20040422, end: 20040423
  15. METHYLPREDNISOLONE 4MG TAB [Suspect]
     Route: 042
     Dates: start: 20040428, end: 20040430
  16. METHYLPREDNISOLONE 4MG TAB [Suspect]
     Route: 042
     Dates: start: 20040510, end: 20040513
  17. TRIMETHOPRIM [Concomitant]
     Indication: DRUG USE FOR UNKNOWN INDICATION
     Route: 048
     Dates: start: 20040423
  18. OMEPRAZOLE [Concomitant]
     Route: 048
     Dates: start: 20040423
  19. ACYCLOVIR [Concomitant]
     Route: 048
     Dates: start: 20040423
  20. AMLODIPINE BESYLATE [Concomitant]
     Route: 048
     Dates: start: 20040423, end: 20040509
  21. METOPROLOL [Concomitant]
     Route: 048
     Dates: start: 20040423
  22. EPOETIN BETA [Concomitant]
     Route: 058
     Dates: start: 20040423, end: 20040508
  23. LERCANIDIPINE [Concomitant]
     Route: 048
     Dates: start: 20040510

REACTIONS (2)
  - OEDEMA [None]
  - SMALL INTESTINAL OBSTRUCTION [None]
